FAERS Safety Report 18335227 (Version 1)
Quarter: 2020Q4

REPORT INFORMATION
  Report Type: Spontaneous
  Country: US (occurrence: US)
  Receive Date: 20201001
  Receipt Date: 20201001
  Transmission Date: 20210113
  Serious: No
  Sender: FDA-Public Use
  Company Number: US-ABBVIE-11P-163-0724121-00

PATIENT
  Sex: Male
  Weight: 76.27 kg

DRUGS (8)
  1. NORVIR [Suspect]
     Active Substance: RITONAVIR
     Indication: HIV TEST POSITIVE
     Route: 048
     Dates: end: 2011
  2. BARACLUDE [Concomitant]
     Active Substance: ENTECAVIR
     Indication: PRODUCT USED FOR UNKNOWN INDICATION
  3. NORVIR [Suspect]
     Active Substance: RITONAVIR
     Route: 048
     Dates: start: 2011, end: 2011
  4. EPIVIR [Concomitant]
     Active Substance: LAMIVUDINE
     Indication: PRODUCT USED FOR UNKNOWN INDICATION
  5. NORVIR [Suspect]
     Active Substance: RITONAVIR
     Route: 048
     Dates: start: 2011, end: 2011
  6. LEXIVA [Concomitant]
     Active Substance: FOSAMPRENAVIR CALCIUM
     Indication: PRODUCT USED FOR UNKNOWN INDICATION
  7. NORVIR [Suspect]
     Active Substance: RITONAVIR
     Indication: HIV TEST POSITIVE
     Route: 048
     Dates: start: 2011, end: 2011
  8. ZERIT [Concomitant]
     Active Substance: STAVUDINE
     Indication: PRODUCT USED FOR UNKNOWN INDICATION

REACTIONS (4)
  - Alopecia [Recovered/Resolved]
  - Burning sensation [Recovered/Resolved]
  - Paraesthesia [Recovered/Resolved]
  - Pruritus [Recovered/Resolved]

NARRATIVE: CASE EVENT DATE: 2011
